FAERS Safety Report 9118372 (Version 1)
Quarter: 2013Q1

REPORT INFORMATION
  Report Type: Spontaneous
  Country: US (occurrence: None)
  Receive Date: 20130221
  Receipt Date: 20130221
  Transmission Date: 20140127
  Serious: Yes (Hospitalization)
  Sender: FDA-Public Use
  Company Number: None

PATIENT
  Age: 41 Year
  Sex: Female
  Weight: 64.41 kg

DRUGS (1)
  1. VIIBRYD [Suspect]
     Indication: DEPRESSION
     Dates: start: 20121101, end: 20130130

REACTIONS (7)
  - Anorgasmia [None]
  - Headache [None]
  - Mania [None]
  - Screaming [None]
  - Abnormal behaviour [None]
  - Memory impairment [None]
  - Sexual dysfunction [None]
